FAERS Safety Report 4661408-2 (Version None)
Quarter: 2005Q2

REPORT INFORMATION
  Report Type: 
  Country: None (occurrence: None)
  Receive Date: 20050513
  Receipt Date: 20050414
  Transmission Date: 20051028
  Serious: Yes (Congenital Anomaly)
  Sender: FDA-Public Use
  Company Number: CA-GLAXOSMITHKLINE-A0554466A

PATIENT
  Sex: Male

DRUGS (3)
  1. WELLBUTRIN [Suspect]
     Indication: MAJOR DEPRESSION
     Dosage: 150MG PER DAY
     Dates: start: 20020101
  2. SYNTHROID [Concomitant]
     Dosage: .137MG PER DAY
  3. DOMPERIDONE [Concomitant]
     Dosage: 10MG EIGHT TIMES PER DAY

REACTIONS (2)
  - HYPOSPADIAS [None]
  - MICROTIA [None]
